FAERS Safety Report 5690277-7 (Version None)
Quarter: 2008Q2

REPORT INFORMATION
  Report Type: 
  Country: None (occurrence: None)
  Receive Date: 20080401
  Receipt Date: 20080319
  Transmission Date: 20081010
  Serious: Yes (Hospitalization, Other)
  Sender: FDA-Public Use
  Company Number: BR-ELI_LILLY_AND_COMPANY-BR200803005178

PATIENT
  Age: 69 Year
  Sex: Female
  Weight: 90 kg

DRUGS (6)
  1. XIGRIS [Suspect]
     Indication: SEPSIS
     Dosage: 24 UNK, OTHER
     Route: 042
     Dates: start: 20080315, end: 20080318
  2. TEICOPLANIN [Concomitant]
     Dosage: UNK, UNKNOWN
     Route: 065
  3. PIPERACILLIN W/TAZOBACTAM [Concomitant]
     Dosage: UNK, UNKNOWN
     Route: 065
  4. PANTOPRAZOLE SODIUM [Concomitant]
     Dosage: UNK, UNKNOWN
     Route: 065
  5. DORMONID [Concomitant]
     Dosage: UNK, UNKNOWN
     Route: 065
  6. NORADRENALINE [Concomitant]
     Dosage: UNK, UNKNOWN
     Route: 065

REACTIONS (4)
  - DISSEMINATED INTRAVASCULAR COAGULATION [None]
  - HAEMOGLOBIN DECREASED [None]
  - HAEMORRHAGE [None]
  - SHOCK HAEMORRHAGIC [None]
